FAERS Safety Report 9642844 (Version 4)
Quarter: 2014Q2

REPORT INFORMATION
  Report Type: Report from Study
  Country: JP (occurrence: JP)
  Receive Date: 20131024
  Receipt Date: 20140612
  Transmission Date: 20141212
  Serious: Yes (Death, Hospitalization, Other)
  Sender: FDA-Public Use
  Company Number: PHHY2013JP119348

PATIENT
  Age: 34 Year
  Sex: Male

DRUGS (2)
  1. TOBI [Suspect]
     Indication: LUNG INFECTION
     Dosage: 300 MG, UNK
     Route: 055
     Dates: start: 20130926, end: 20131012
  2. TOBI [Suspect]
     Indication: CYSTIC FIBROSIS

REACTIONS (5)
  - Lower respiratory tract infection [Fatal]
  - Condition aggravated [Fatal]
  - Lung infection [Unknown]
  - Pseudomonas infection [Unknown]
  - Drug resistance [Unknown]
